FAERS Safety Report 20627031 (Version 7)
Quarter: 2022Q4

REPORT INFORMATION
  Report Type: Report from Study
  Country: CN (occurrence: None)
  Receive Date: 20220323
  Receipt Date: 20221202
  Transmission Date: 20230112
  Serious: Yes (Hospitalization)
  Sender: FDA-Public Use
  Company Number: CN-ROCHE-3049337

PATIENT
  Age: 54 Year
  Sex: Female
  Weight: 54.5 kg

DRUGS (12)
  1. TOCILIZUMAB [Suspect]
     Active Substance: TOCILIZUMAB
     Indication: Rheumatoid arthritis
     Dosage: ON 17/AUG/2021, SHE RECEIVED MOST RECENT DOSE OF SUBCUTANEOUS BLINDED TOCILIZUMAB PRE-FILLED SYRINGE
     Route: 058
     Dates: start: 20210511
  2. METHOTREXATE [Suspect]
     Active Substance: METHOTREXATE
     Indication: Rheumatoid arthritis
     Dosage: ON 17/AUG/2021, SHE RECEIVED MOST RECENT DOSE OF ORAL BLINDED METHOTREXATE PRIOR TO AE AND SAE.?DOSE
     Route: 048
     Dates: start: 20210511
  3. TOCILIZUMAB [Suspect]
     Active Substance: TOCILIZUMAB
     Indication: Rheumatoid arthritis
     Dosage: ON 02/MAR/2022, SHE RECEIVED MOST RECENT DOSE (162 MG) OF SUBCUTANEOUS TOCILIZUMAB PRE-FILLED SYRING
     Route: 058
     Dates: start: 20210901
  4. METHOTREXATE [Suspect]
     Active Substance: METHOTREXATE
     Indication: Rheumatoid arthritis
     Dosage: ON 01/MAR/2022, SHE RECEIVED MOST RECENT DOSE (10 MG, DOSE CONCENTRATION : 2.5 MG) OF ORAL METHOTREX
     Route: 048
     Dates: start: 20210907
  5. FOLIC ACID [Concomitant]
     Active Substance: FOLIC ACID
     Dosage: PREVENT SIDE EFFECTS OF METHOTREXATE
     Dates: start: 20210120, end: 20220413
  6. CEFIXIME [Concomitant]
     Active Substance: CEFIXIME
     Indication: Bronchitis
     Dates: start: 20220124, end: 20220127
  7. AMBROXOL HYDROCHLORIDE SUSTAINED RELEASE [Concomitant]
     Indication: Bronchitis
     Dates: start: 20220124, end: 20220127
  8. FEI NING WAN [Concomitant]
     Indication: Bronchitis
     Dates: start: 20220124, end: 20220127
  9. ITOPRIDE HYDROCHLORIDE [Concomitant]
     Active Substance: ITOPRIDE HYDROCHLORIDE
     Indication: Chronic gastritis
     Dosage: NO
     Dates: start: 20220312, end: 20220410
  10. ESOMEPRAZOLE MAGNESIUM [Concomitant]
     Active Substance: ESOMEPRAZOLE MAGNESIUM
     Indication: Chronic gastritis
     Dates: start: 20220312, end: 20220331
  11. ROXITHROMYCIN [Concomitant]
     Active Substance: ROXITHROMYCIN
     Indication: Nasopharyngitis
     Dates: start: 20220525, end: 20220530
  12. BUDESONIDE [Concomitant]
     Active Substance: BUDESONIDE
     Indication: Nasopharyngitis
     Route: 055
     Dates: start: 20220525

REACTIONS (1)
  - Nasopharyngeal tumour [Recovered/Resolved]

NARRATIVE: CASE EVENT DATE: 20220201
